FAERS Safety Report 13763675 (Version 1)
Quarter: 2017Q3

REPORT INFORMATION
  Report Type: Spontaneous
  Country: FR (occurrence: FR)
  Receive Date: 20170718
  Receipt Date: 20170718
  Transmission Date: 20171127
  Serious: Yes (Hospitalization)
  Sender: FDA-Public Use
  Company Number: FR-BAYER-2017-134666

PATIENT
  Age: 33 Year
  Sex: Female

DRUGS (1)
  1. MIRENA [Suspect]
     Active Substance: LEVONORGESTREL
     Indication: CHEMICAL CONTRACEPTION
     Dosage: 20 MCG/24HR, CONT
     Route: 015
     Dates: start: 20160308, end: 20170619

REACTIONS (9)
  - Weight increased [Unknown]
  - Abdominal distension [Unknown]
  - Depression [Unknown]
  - Breast pain [Unknown]
  - Asthenia [Unknown]
  - Irritability [Unknown]
  - Gallbladder disorder [Unknown]
  - Conversion disorder [Unknown]
  - Back pain [Unknown]

NARRATIVE: CASE EVENT DATE: 201606
